FAERS Safety Report 5701631-9 (Version None)
Quarter: 2008Q2

REPORT INFORMATION
  Report Type: 
  Country: None (occurrence: None)
  Receive Date: 20080409
  Receipt Date: 20080409
  Transmission Date: 20081010
  Serious: No
  Sender: FDA-Public Use
  Company Number: None

PATIENT
  Age: 75 Year
  Sex: Male

DRUGS (1)
  1. LEVAQUIN [Suspect]
     Dosage: IV
     Route: 042
     Dates: start: 19970305, end: 20080305

REACTIONS (2)
  - ABNORMAL BEHAVIOUR [None]
  - NERVOUS SYSTEM DISORDER [None]
